FAERS Safety Report 19019467 (Version 6)
Quarter: 2021Q3

REPORT INFORMATION
  Report Type: Spontaneous
  Country: JP (occurrence: JP)
  Receive Date: 20210316
  Receipt Date: 20210811
  Transmission Date: 20211014
  Serious: Yes (Hospitalization, Other)
  Sender: FDA-Public Use
  Company Number: JP-BRISTOL-MYERS SQUIBB COMPANY-BMS-2021-023993

PATIENT
  Age: 26 Year
  Sex: Female
  Weight: 56 kg

DRUGS (7)
  1. OPDIVO [Suspect]
     Active Substance: NIVOLUMAB
     Dosage: 80 MILLIGRAM, ONE TIME DOSE
     Route: 041
     Dates: start: 20210225, end: 20210225
  2. OPDIVO [Suspect]
     Active Substance: NIVOLUMAB
     Dosage: 240 MILLIGRAM
     Route: 041
     Dates: start: 20210419
  3. YERVOY [Suspect]
     Active Substance: IPILIMUMAB
     Dosage: 170 MILLIGRAM, ONE TIME DOSE
     Route: 041
     Dates: start: 20210127, end: 20210127
  4. OPDIVO [Suspect]
     Active Substance: NIVOLUMAB
     Indication: MALIGNANT MELANOMA
     Dosage: 80 MILLIGRAM, ONE TIME DOSE
     Route: 041
     Dates: start: 20210106, end: 20210106
  5. YERVOY [Suspect]
     Active Substance: IPILIMUMAB
     Dosage: 170 MILLIGRAM, ONE TIME DOSE
     Route: 041
     Dates: start: 20210225, end: 20210225
  6. OPDIVO [Suspect]
     Active Substance: NIVOLUMAB
     Dosage: 80 MILLIGRAM, ONE TIME DOSE
     Route: 041
     Dates: start: 20210127, end: 20210127
  7. YERVOY [Suspect]
     Active Substance: IPILIMUMAB
     Indication: MALIGNANT MELANOMA
     Dosage: 170 MILLIGRAM, ONE TIME DOSE
     Route: 041
     Dates: start: 20210106, end: 20210106

REACTIONS (14)
  - Atrioventricular block second degree [Recovered/Resolved]
  - Pyrexia [Recovered/Resolved]
  - Ventricular extrasystoles [Recovered/Resolved]
  - Vomiting [Recovered/Resolved]
  - Adrenal insufficiency [Recovering/Resolving]
  - Diarrhoea [Recovering/Resolving]
  - Splenomegaly [Unknown]
  - Ventricular fibrillation [Recovered/Resolved]
  - Dizziness [Recovered/Resolved]
  - Malaise [Recovering/Resolving]
  - Lymphadenopathy [Unknown]
  - Thyroiditis [Recovering/Resolving]
  - C-reactive protein increased [Unknown]
  - Headache [Not Recovered/Not Resolved]

NARRATIVE: CASE EVENT DATE: 20210208
